FAERS Safety Report 24986620 (Version 4)
Quarter: 2025Q2

REPORT INFORMATION
  Report Type: Spontaneous
  Country: US (occurrence: US)
  Receive Date: 20250219
  Receipt Date: 20250530
  Transmission Date: 20250717
  Serious: Yes (Hospitalization, Other)
  Sender: BIOGEN
  Company Number: US-BIOGEN-2024BI01289611

PATIENT
  Sex: Female

DRUGS (1)
  1. TYSABRI [Suspect]
     Active Substance: NATALIZUMAB
     Indication: Multiple sclerosis
     Route: 050
     Dates: start: 20241105

REACTIONS (10)
  - Iron deficiency anaemia [Unknown]
  - Renal pain [Unknown]
  - Pancreatic disorder [Unknown]
  - Cholelithiasis [Unknown]
  - Diarrhoea [Unknown]
  - Pancreatic neoplasm [Unknown]
  - Blood urine present [Unknown]
  - Spinal pain [Not Recovered/Not Resolved]
  - Neurological decompensation [Unknown]
  - Multiple sclerosis relapse [Unknown]
